FAERS Safety Report 9164770 (Version 2)
Quarter: 2013Q2

REPORT INFORMATION
  Report Type: Spontaneous
  Country: US (occurrence: US)
  Receive Date: 20130315
  Receipt Date: 20130416
  Transmission Date: 20140414
  Serious: No
  Sender: FDA-Public Use
  Company Number: US-PFIZER INC-2013083543

PATIENT
  Age: 16 Year
  Sex: Female
  Weight: 52.15 kg

DRUGS (4)
  1. LYRICA [Suspect]
     Indication: FIBROMYALGIA
     Dosage: 50 MG, 1X/DAY (ONCE A DAY)
     Route: 048
     Dates: start: 20130227
  2. LYRICA [Suspect]
     Dosage: 50 MG, 2X/DAY (TWO TIMES A DAY)
     Dates: start: 20130301
  3. FLEXERIL [Concomitant]
     Dosage: 10 MG, 1X/DAY (DAILY)
  4. TRAZODONE [Concomitant]
     Dosage: 25 MG, 1X/DAY (DAILY)

REACTIONS (2)
  - Off label use [Unknown]
  - Abdominal pain upper [Not Recovered/Not Resolved]
